FAERS Safety Report 6436187-9 (Version None)
Quarter: 2009Q4

REPORT INFORMATION
  Report Type: 
  Country: None (occurrence: None)
  Receive Date: 20091111
  Receipt Date: 20091105
  Transmission Date: 20100525
  Serious: Yes (Other)
  Sender: FDA-Public Use
  Company Number: ES-ROCHE-667395

PATIENT
  Age: 21 Year
  Sex: Male

DRUGS (8)
  1. CEFTRIAXONE [Suspect]
     Indication: BACTERIAL INFECTION
     Dosage: 2 GRAM EVERY 24 HOURS.
     Route: 042
     Dates: start: 20060801, end: 20061001
  2. SULFAMETHOXAZOLE/TRIMETHOPRIM [Suspect]
     Indication: BACTERIAL INFECTION
     Dosage: STRENGTH: 800/160 MG.
     Route: 042
     Dates: start: 20060801, end: 20061001
  3. ERTAPENEM [Suspect]
     Indication: BACTERIAL INFECTION
     Route: 065
     Dates: start: 20070103, end: 20070204
  4. DOXYCYCLINE [Suspect]
     Indication: BACTERIAL INFECTION
     Route: 048
     Dates: start: 20070109, end: 20070204
  5. RIFAMPIN [Suspect]
     Indication: BACTERIAL INFECTION
     Route: 065
     Dates: start: 20070109, end: 20070204
  6. LINEZOLID [Suspect]
     Indication: BACTERIAL INFECTION
     Route: 048
     Dates: start: 20070204
  7. LEVOFLOXACIN [Suspect]
     Indication: BACTERIAL INFECTION
     Route: 065
     Dates: start: 20070204
  8. CEFTIBUTEN [Suspect]
     Indication: BACTERIAL INFECTION
     Route: 065
     Dates: start: 20070204

REACTIONS (1)
  - DRUG INEFFECTIVE [None]
